FAERS Safety Report 4836318-8 (Version None)
Quarter: 2005Q4

REPORT INFORMATION
  Report Type: 
  Country: None (occurrence: None)
  Receive Date: 20051118
  Receipt Date: 20051109
  Transmission Date: 20060501
  Serious: No
  Sender: FDA-Public Use
  Company Number: 05H-044-0303556-00

PATIENT

DRUGS (6)
  1. SUCCINYLCHOLINE CHLORIDE [Suspect]
     Indication: INDUCTION OF ANAESTHESIA
     Dosage: 1 MG/KG
  2. MORPHINE [Concomitant]
  3. 100% OXYGEN (OXYGEN) [Concomitant]
  4. ALFENTANIL [Concomitant]
  5. PROPOFOL [Concomitant]
  6. SALINE (SODIUM CHLORIDE) [Concomitant]

REACTIONS (2)
  - ATRIAL FIBRILLATION [None]
  - VENTRICULAR TACHYCARDIA [None]
